FAERS Safety Report 7161733-X (Version None)
Quarter: 2010Q4

REPORT INFORMATION
  Report Type: 
  Country: None (occurrence: None)
  Receive Date: 20101215
  Receipt Date: 20101202
  Transmission Date: 20110411
  Serious: No
  Sender: FDA-Public Use
  Company Number: AT-ELI_LILLY_AND_COMPANY-AT201012001090

PATIENT
  Age: 35 Year
  Sex: Female
  Weight: 60 kg

DRUGS (7)
  1. CYMBALTA [Suspect]
     Indication: DEPRESSION
     Dosage: MG, DAILY (1/D)
     Dates: start: 20101127, end: 20101130
  2. CYMBALTA [Suspect]
     Dosage: 60 MG, DAILY (1/D)
     Dates: start: 20101201
  3. SIRDALUD [Concomitant]
     Dosage: UNK, UNKNOWN
  4. NAPROXEN [Concomitant]
     Dosage: UNK, UNKNOWN
  5. INDOCIN [Concomitant]
     Dosage: UNK, UNKNOWN
  6. PANTOLOC /01263202/ [Concomitant]
     Dosage: UNK, UNKNOWN
  7. NEODOLPASSE [Concomitant]
     Dosage: UNK, UNKNOWN

REACTIONS (4)
  - ALANINE AMINOTRANSFERASE INCREASED [None]
  - ASPARTATE AMINOTRANSFERASE INCREASED [None]
  - GAMMA-GLUTAMYLTRANSFERASE INCREASED [None]
  - HEPATIC ENZYME INCREASED [None]
